FAERS Safety Report 8896889 (Version 1)
Quarter: 2012Q4

REPORT INFORMATION
  Report Type: Spontaneous
  Country: ES (occurrence: None)
  Receive Date: 20121101
  Receipt Date: 20121101
  Transmission Date: 20130627
  Serious: Yes (Death)
  Sender: FDA-Public Use
  Company Number: 2012-003754

PATIENT
  Sex: Male

DRUGS (2)
  1. MESALAZINE [Suspect]
     Route: 064
  2. SERTRALINE (SERTRALINE) (SERTRALINE) [Suspect]
     Route: 064

REACTIONS (4)
  - Maternal drugs affecting foetus [None]
  - Hydrocephalus [None]
  - Cardiac septal defect [None]
  - Exomphalos [None]
